FAERS Safety Report 8384261-2 (Version None)
Quarter: 2012Q2

REPORT INFORMATION
  Report Type: 
  Country: None (occurrence: None)
  Receive Date: 20120524
  Receipt Date: 20120515
  Transmission Date: 20120825
  Serious: Yes (Other)
  Sender: FDA-Public Use
  Company Number: JP-VERTEX PHARMACEUTICALS INC.-AE-2012-007592

PATIENT
  Age: 51 Year
  Sex: Male

DRUGS (1)
  1. TELAVIC (TELAPREVIR) [Suspect]
     Indication: HEPATITIS C
     Route: 048
     Dates: start: 20120508

REACTIONS (2)
  - BLOOD URIC ACID INCREASED [None]
  - BLOOD CREATINE PHOSPHOKINASE INCREASED [None]
